FAERS Safety Report 6641402-2 (Version None)
Quarter: 2010Q1

REPORT INFORMATION
  Report Type: 
  Country: None (occurrence: None)
  Receive Date: 20100317
  Receipt Date: 20100317
  Transmission Date: 20100710
  Serious: No
  Sender: FDA-Public Use
  Company Number: None

PATIENT
  Age: 52 Year
  Sex: Female
  Weight: 65 kg

DRUGS (1)
  1. PREMPRO [Suspect]
     Indication: MENOPAUSAL SYMPTOMS
     Dosage: 0/3/1.5 MG EVERY DAY IV
     Route: 042
     Dates: start: 20071227, end: 20091015

REACTIONS (3)
  - MESENTERIC VEIN THROMBOSIS [None]
  - PANCREATITIS ACUTE [None]
  - SPLENIC VEIN THROMBOSIS [None]
